FAERS Safety Report 8131035-3 (Version None)
Quarter: 2012Q1

REPORT INFORMATION
  Report Type: 
  Country: None (occurrence: None)
  Receive Date: 20120208
  Receipt Date: 20120208
  Transmission Date: 20120608
  Serious: Yes (Hospitalization)
  Sender: FDA-Public Use
  Company Number: None

PATIENT
  Age: 58 Year
  Sex: Male
  Weight: 86.4 kg

DRUGS (2)
  1. RITONAVIR [Suspect]
     Indication: HIV INFECTION
     Dosage: 100MG MG EVERY DAY PO
     Route: 048
     Dates: start: 20051201, end: 20120112
  2. ATAZANAVIR [Suspect]
     Indication: HIV INFECTION
     Dosage: 300 MG EVERY DAY PO
     Route: 048
     Dates: start: 20120112, end: 20120112

REACTIONS (1)
  - NEPHROLITHIASIS [None]
